FAERS Safety Report 6912316-5 (Version None)
Quarter: 2010Q3

REPORT INFORMATION
  Report Type: 
  Country: None (occurrence: None)
  Receive Date: 20100806
  Receipt Date: 20080326
  Transmission Date: 20110219
  Serious: No
  Sender: FDA-Public Use
  Company Number: US-PFIZER INC-2008026784

PATIENT
  Sex: Female

DRUGS (3)
  1. GLUCOTROL [Suspect]
  2. INSULIN HUMAN [Suspect]
  3. GLUCOTROL XL [Suspect]

REACTIONS (1)
  - DIABETES MELLITUS INADEQUATE CONTROL [None]
